FAERS Safety Report 4830480-9 (Version None)
Quarter: 2005Q4

REPORT INFORMATION
  Report Type: 
  Country: None (occurrence: None)
  Receive Date: 20051117
  Receipt Date: 20051021
  Transmission Date: 20060501
  Serious: Yes (Hospitalization)
  Sender: FDA-Public Use
  Company Number: AU-AMGEN-US155324

PATIENT
  Sex: Male

DRUGS (4)
  1. KINERET [Suspect]
     Indication: RHEUMATOID ARTHRITIS
     Route: 058
     Dates: start: 20050915, end: 20051020
  2. LEFLUNOMIDE [Concomitant]
     Dates: start: 20040101
  3. MYOCRISIN [Concomitant]
     Dates: start: 20010101
  4. METHOTREXATE [Concomitant]
     Dates: start: 20000101

REACTIONS (4)
  - DERMATITIS [None]
  - HYPERSENSITIVITY [None]
  - RASH [None]
  - SERUM SICKNESS [None]
